FAERS Safety Report 16822835 (Version 1)
Quarter: 2019Q3

REPORT INFORMATION
  Report Type: Report from Study
  Country: DE (occurrence: DE)
  Receive Date: 20190918
  Receipt Date: 20190918
  Transmission Date: 20191005
  Serious: Yes (Life-Threatening)
  Sender: FDA-Public Use
  Company Number: DE-RECRO GAINESVILLE LLC-REPH-2019-000193

PATIENT

DRUGS (1)
  1. VERAPAMIL HYDROCHLORIDE SUSTAINED RELEASE [Suspect]
     Active Substance: VERAPAMIL HYDROCHLORIDE
     Dosage: 9.6 GRAM, ONE TIME DOSE
     Route: 048

REACTIONS (3)
  - Hypotension [Recovered/Resolved]
  - Intentional overdose [Recovered/Resolved]
  - Bradycardia [Recovered/Resolved]
